FAERS Safety Report 12956537 (Version 1)
Quarter: 2016Q4

REPORT INFORMATION
  Report Type: Spontaneous
  Country: BR (occurrence: BR)
  Receive Date: 20161118
  Receipt Date: 20161118
  Transmission Date: 20170207
  Serious: Yes (Other)
  Sender: FDA-Public Use
  Company Number: BR-NOVOPROD-518439

PATIENT
  Sex: Female

DRUGS (1)
  1. LEVEMIR [Suspect]
     Active Substance: INSULIN DETEMIR
     Indication: PRODUCT USED FOR UNKNOWN INDICATION
     Dosage: BID
     Route: 065

REACTIONS (7)
  - Pancreatic insufficiency [Unknown]
  - Drug administered in wrong device [Unknown]
  - Ear pain [Unknown]
  - Auditory disorder [Unknown]
  - Blood glucose increased [Unknown]
  - Injection site mass [Unknown]
  - Device failure [Unknown]
